FAERS Safety Report 7361572-0 (Version None)
Quarter: 2011Q1

REPORT INFORMATION
  Report Type: 
  Country: None (occurrence: None)
  Receive Date: 20110309
  Receipt Date: 20110221
  Transmission Date: 20110831
  Serious: Yes (Death)
  Sender: FDA-Public Use
  Company Number: 2011MA001609

PATIENT
  Age: 25 Year
  Sex: Male

DRUGS (4)
  1. METHADONE [Concomitant]
  2. BUSPIRONE HCL [Concomitant]
  3. SERTRALINE HYDROCHLORIDE [Suspect]
     Dosage: INH
     Route: 055
  4. LORAZEPAM [Concomitant]

REACTIONS (8)
  - PULMONARY OEDEMA [None]
  - OVERDOSE [None]
  - SUBSTANCE ABUSE [None]
  - BRAIN OEDEMA [None]
  - RHINORRHOEA [None]
  - GRANULOMA [None]
  - DRUG INTERACTION [None]
  - CARDIOMEGALY [None]
